FAERS Safety Report 18150879 (Version 1)
Quarter: 2020Q3

REPORT INFORMATION
  Report Type: Spontaneous
  Country: US (occurrence: US)
  Receive Date: 20200814
  Receipt Date: 20200814
  Transmission Date: 20201103
  Serious: Yes (Other)
  Sender: FDA-Public Use
  Company Number: None

PATIENT
  Sex: Female
  Weight: 67.5 kg

DRUGS (7)
  1. PERFOROMIST [Suspect]
     Active Substance: FORMOTEROL FUMARATE DIHYDRATE
  2. LOSARTAN. [Concomitant]
     Active Substance: LOSARTAN
  3. LEVALBUTEROL TAR [Concomitant]
  4. YUPELRI [Concomitant]
     Active Substance: REVEFENACIN
  5. OMEPRAZOLE. [Concomitant]
     Active Substance: OMEPRAZOLE
  6. METOPROLOL TARTRATE. [Concomitant]
     Active Substance: METOPROLOL TARTRATE
  7. MONTELUKAST [Concomitant]
     Active Substance: MONTELUKAST SODIUM

REACTIONS (10)
  - Vomiting [None]
  - Abdominal pain [None]
  - Dyspepsia [None]
  - Dizziness [None]
  - Irritable bowel syndrome [None]
  - Nausea [None]
  - Decreased appetite [None]
  - Oral mucosal blistering [None]
  - Diarrhoea [None]
  - Oral pain [None]
